FAERS Safety Report 9219051 (Version 2)
Quarter: 2013Q2

REPORT INFORMATION
  Report Type: Spontaneous
  Country: US (occurrence: US)
  Receive Date: 20130409
  Receipt Date: 20130515
  Transmission Date: 20140414
  Serious: Yes (Other)
  Sender: FDA-Public Use
  Company Number: PHEH2013US007799

PATIENT
  Age: 55 Year
  Sex: Male
  Weight: 89.8 kg

DRUGS (7)
  1. GILENYA [Suspect]
     Indication: MULTIPLE SCLEROSIS
     Dosage: 0.5 MG, QD
     Route: 048
     Dates: start: 20110423, end: 20130329
  2. AMPYRA [Concomitant]
     Indication: MULTIPLE SCLEROSIS
     Dosage: 10 MG, BID
     Route: 048
  3. BACLOFEN [Concomitant]
     Indication: MUSCLE SPASTICITY
     Dosage: 10 MG, QID
     Route: 048
  4. LYRICA [Concomitant]
     Indication: NEURALGIA
     Dosage: 100 MG, UNK
     Route: 048
  5. NUVIGIL [Concomitant]
     Indication: FATIGUE
     Dosage: 250 MG, QD
     Route: 048
  6. ZANAFLEX [Concomitant]
     Indication: MUSCLE SPASTICITY
     Dosage: 4 MG, QID
     Route: 048
  7. COUMADINE [Concomitant]
     Dosage: 2.5 MG, QD
     Route: 048

REACTIONS (1)
  - Basal cell carcinoma [Not Recovered/Not Resolved]
